FAERS Safety Report 6464728-4 (Version None)
Quarter: 2009Q4

REPORT INFORMATION
  Report Type: 
  Country: None (occurrence: None)
  Receive Date: 20091201
  Receipt Date: 20091119
  Transmission Date: 20100525
  Serious: Yes (Life-Threatening)
  Sender: FDA-Public Use
  Company Number: JP-ELI_LILLY_AND_COMPANY-JP200910000325

PATIENT
  Sex: Female
  Weight: 52 kg

DRUGS (22)
  1. EVISTA [Suspect]
     Indication: OSTEOPOROSIS
     Dosage: 60 MG, DAILY (1/D)
     Route: 048
     Dates: start: 20090801, end: 20090925
  2. CALFINA [Concomitant]
     Indication: OSTEOPOROSIS
     Dosage: 0.5 UG, 2/D
     Route: 048
     Dates: start: 20090801, end: 20090924
  3. LOXOMARIN [Concomitant]
     Indication: ANALGESIC THERAPY
     Dosage: 60 MG, 3/D
     Route: 048
     Dates: start: 20090808, end: 20090924
  4. ELCATONIN [Concomitant]
     Indication: OSTEOPOROSIS
     Dosage: 20 U, DAILY (1/D)
     Route: 030
     Dates: start: 20090801, end: 20090801
  5. ELCATONIN [Concomitant]
     Dosage: 20 U, DAILY (1/D)
     Route: 030
     Dates: start: 20090808, end: 20090808
  6. ELCATONIN [Concomitant]
     Dosage: 20 U, DAILY (1/D)
     Route: 030
     Dates: start: 20090822, end: 20090822
  7. ELCATONIN [Concomitant]
     Dosage: 20 U, DAILY (1/D)
     Route: 030
     Dates: start: 20090829, end: 20090829
  8. ELCATONIN [Concomitant]
     Dosage: 20 U, DAILY (1/D)
     Route: 030
     Dates: start: 20090905, end: 20090905
  9. ELCATONIN [Concomitant]
     Dosage: 20 U, DAILY (1/D)
     Route: 030
     Dates: start: 20090912, end: 20090912
  10. ALPROSTADIL [Concomitant]
     Indication: LUMBAR SPINAL STENOSIS
     Dosage: 10 UG, DAILY (1/D)
     Route: 042
     Dates: start: 20090912, end: 20090918
  11. TANKARU [Concomitant]
     Dosage: 500 MG, DAILY (1/D)
     Route: 048
     Dates: start: 20071024
  12. ALFAROL [Concomitant]
     Dosage: 1 UG, DAILY (1/D)
     Route: 048
     Dates: start: 20071024, end: 20090729
  13. GLAKAY [Concomitant]
     Dosage: 15 MG, DAILY (1/D)
     Route: 048
     Dates: start: 20071024
  14. LOXONIN [Concomitant]
     Dosage: 60 MG, DAILY (1/D)
     Route: 065
     Dates: start: 20081119, end: 20090729
  15. OPALMON [Concomitant]
     Dosage: 5 UG, DAILY (1/D)
     Route: 048
     Dates: start: 20090311
  16. LIPLE [Concomitant]
     Dosage: 10 UG, DAILY (1/D)
     Route: 042
     Dates: start: 20090715, end: 20090729
  17. DECADRON                                /CAN/ [Concomitant]
     Dosage: 4 MG, DAILY (1/D)
     Route: 065
     Dates: start: 20090603, end: 20090714
  18. DECADRON                                /CAN/ [Concomitant]
     Dosage: 2 MG, DAILY (1/D)
     Route: 065
     Dates: start: 20090715
  19. KASHILON [Concomitant]
     Dosage: 10 ML, DAILY (1/D)
     Route: 042
     Dates: start: 20090603
  20. NEUROTROPIN [Concomitant]
     Route: 042
     Dates: start: 20090603
  21. NEOLAMIN 3B [Concomitant]
     Dosage: UNK, UNK
     Route: 042
     Dates: start: 20090603
  22. ELCITONIN [Concomitant]
     Dosage: UNK, UNK
     Route: 042
     Dates: start: 20090603, end: 20090729

REACTIONS (2)
  - PULMONARY EMBOLISM [None]
  - PULMONARY HYPERTENSION [None]
